FAERS Safety Report 21028928 (Version 1)
Quarter: 2022Q2

REPORT INFORMATION
  Report Type: Spontaneous
  Country: DK (occurrence: DK)
  Receive Date: 20220630
  Receipt Date: 20220630
  Transmission Date: 20220721
  Serious: Yes (Hospitalization, Other)
  Sender: FDA-Public Use
  Company Number: None

PATIENT
  Age: 19 Year
  Sex: Male

DRUGS (1)
  1. TRAMADOL [Suspect]
     Active Substance: TRAMADOL
     Indication: Product used for unknown indication
     Dosage: 800 MILLIGRAM, TOTAL (STRENGTH: UNKNOWN)
     Route: 048
     Dates: start: 20220604, end: 20220604

REACTIONS (6)
  - Eye movement disorder [Recovered/Resolved]
  - Opisthotonus [Recovered/Resolved]
  - Foaming at mouth [Recovered/Resolved]
  - Generalised tonic-clonic seizure [Recovered/Resolved]
  - Dyskinesia [Recovered/Resolved]
  - Drug abuse [Unknown]

NARRATIVE: CASE EVENT DATE: 20220604
